FAERS Safety Report 12420656 (Version 1)
Quarter: 2016Q2

REPORT INFORMATION
  Report Type: Spontaneous
  Country: IT (occurrence: IT)
  Receive Date: 20160531
  Receipt Date: 20160531
  Transmission Date: 20160815
  Serious: Yes (Other)
  Sender: FDA-Public Use
  Company Number: IT-PFIZER INC-2016275970

PATIENT
  Age: 92 Year
  Sex: Female

DRUGS (8)
  1. IPNOLOR [Suspect]
     Active Substance: LORMETAZEPAM
     Dosage: 1 DF, DAILY
     Route: 048
     Dates: start: 20160407, end: 20160413
  2. LYRICA [Suspect]
     Active Substance: PREGABALIN
     Indication: PAIN
     Dosage: 1 DF, DAILY
     Route: 048
     Dates: start: 20160407, end: 20160413
  3. PALEXIA [Suspect]
     Active Substance: TAPENTADOL HYDROCHLORIDE
     Indication: PAIN
     Dosage: 2 DF, DAILY
     Route: 048
     Dates: start: 20160407, end: 20160413
  4. AMIODARONE [Concomitant]
     Active Substance: AMIODARONE
     Dosage: 200 MG, UNK
     Route: 048
  5. SPIRIVA [Concomitant]
     Active Substance: TIOTROPIUM BROMIDE MONOHYDRATE
  6. XARELTO [Concomitant]
     Active Substance: RIVAROXABAN
     Route: 048
  7. LASIX [Concomitant]
     Active Substance: FUROSEMIDE
     Dosage: 2 DF, UNK
     Route: 048
  8. APROVEL [Concomitant]
     Active Substance: IRBESARTAN
     Route: 048

REACTIONS (7)
  - Fatigue [None]
  - Psychomotor retardation [None]
  - Overdose [Recovering/Resolving]
  - Bradycardia [Recovering/Resolving]
  - Respiratory acidosis [None]
  - Atrial fibrillation [Recovering/Resolving]
  - Respiratory depression [Recovering/Resolving]

NARRATIVE: CASE EVENT DATE: 20160413
